FAERS Safety Report 22021545 (Version 1)
Quarter: 2023Q1

REPORT INFORMATION
  Report Type: Spontaneous
  Country: US (occurrence: None)
  Receive Date: 20230220
  Receipt Date: 20230220
  Transmission Date: 20230417
  Serious: Yes (Hospitalization)
  Sender: FDA-Public Use
  Company Number: None

PATIENT
  Age: 62 Year
  Sex: Male
  Weight: 72.57 kg

DRUGS (16)
  1. ABIRATERONE ACETATE [Suspect]
     Active Substance: ABIRATERONE ACETATE
     Indication: Prostate cancer
     Dosage: 1000MG DAILY ORAL
     Route: 048
     Dates: start: 20221122
  2. ATORVASTATIN [Concomitant]
     Active Substance: ATORVASTATIN
  3. BACLOFEN [Concomitant]
     Active Substance: BACLOFEN
  4. CITALOPRAM [Concomitant]
     Active Substance: CITALOPRAM HYDROBROMIDE
  5. CYCLOBENZAPRINE [Concomitant]
     Active Substance: CYCLOBENZAPRINE
  6. DICYCLOMINE [Concomitant]
     Active Substance: DICYCLOMINE HYDROCHLORIDE
  7. FENOFIBRATE [Concomitant]
     Active Substance: FENOFIBRATE
  8. HYDROCHLOROTHIAZIDE [Concomitant]
     Active Substance: HYDROCHLOROTHIAZIDE
  9. LOSARTAN [Concomitant]
     Active Substance: LOSARTAN
  10. LUPRON DEPOT [Concomitant]
     Active Substance: LEUPROLIDE ACETATE
  11. METOPROLOL [Concomitant]
     Active Substance: METOPROLOL
  12. OMEPRAZOLE [Concomitant]
     Active Substance: OMEPRAZOLE
  13. OTEZLA [Concomitant]
     Active Substance: APREMILAST
  14. PREDNISONE [Concomitant]
     Active Substance: PREDNISONE
  15. SULFASALAZINE [Concomitant]
     Active Substance: SULFASALAZINE
  16. VITAMIN D3 [Concomitant]
     Active Substance: CHOLECALCIFEROL

REACTIONS (2)
  - Abdominal pain [None]
  - Gastrointestinal pain [None]

NARRATIVE: CASE EVENT DATE: 20230218
